FAERS Safety Report 14172571 (Version 1)
Quarter: 2017Q4

REPORT INFORMATION
  Report Type: Spontaneous
  Country: US (occurrence: US)
  Receive Date: 20171108
  Receipt Date: 20171108
  Transmission Date: 20180321
  Serious: Yes (Other)
  Sender: FDA-Public Use
  Company Number: None

PATIENT
  Age: 30 Year
  Sex: Female
  Weight: 65.7 kg

DRUGS (1)
  1. COMPAZINE [Suspect]
     Active Substance: PROCHLORPERAZINE MALEATE
     Indication: NAUSEA
     Route: 040
     Dates: start: 20171103

REACTIONS (4)
  - Agitation [None]
  - Nausea [None]
  - Dyspnoea [None]
  - Blood pressure decreased [None]

NARRATIVE: CASE EVENT DATE: 20171103
